FAERS Safety Report 7074985-1 (Version None)
Quarter: 2010Q4

REPORT INFORMATION
  Report Type: 
  Country: None (occurrence: None)
  Receive Date: 20101029
  Receipt Date: 20100224
  Transmission Date: 20110411
  Serious: No
  Sender: FDA-Public Use
  Company Number: US-WYE-H13807410

PATIENT
  Age: 70 Year
  Sex: Female
  Weight: 79.45 kg

DRUGS (7)
  1. ALAVERT [Suspect]
     Indication: HYPERSENSITIVITY
     Route: 048
     Dates: start: 20100216, end: 20100220
  2. ALAVERT [Suspect]
     Indication: RHINORRHOEA
  3. ALAVERT [Suspect]
     Indication: COUGH
  4. ALAVERT [Suspect]
     Indication: THROAT IRRITATION
  5. GARLIC [Concomitant]
  6. FISH OIL [Concomitant]
  7. BENICAR [Concomitant]

REACTIONS (1)
  - DRUG INEFFECTIVE [None]
